FAERS Safety Report 21813369 (Version 1)
Quarter: 2023Q1

REPORT INFORMATION
  Report Type: Spontaneous
  Country: US (occurrence: US)
  Receive Date: 20230103
  Receipt Date: 20230103
  Transmission Date: 20230417
  Serious: No
  Sender: FDA-Public Use
  Company Number: US-BEH-2023153753

PATIENT
  Sex: Female
  Weight: 36.281 kg

DRUGS (1)
  1. HIZENTRA [Suspect]
     Active Substance: HUMAN IMMUNOGLOBULIN G
     Indication: Humoral immune defect
     Dosage: 8 GRAM, QOW
     Route: 058
     Dates: start: 202208

REACTIONS (2)
  - Weight increased [Unknown]
  - Decreased appetite [Unknown]
